FAERS Safety Report 24702605 (Version 1)
Quarter: 2024Q4

REPORT INFORMATION
  Report Type: Spontaneous
  Country: US (occurrence: US)
  Receive Date: 20241205
  Receipt Date: 20241205
  Transmission Date: 20250114
  Serious: Yes (Other)
  Sender: ABBVIE
  Company Number: US-ABBVIE-6031324

PATIENT
  Age: 84 Year
  Sex: Male
  Weight: 92.986 kg

DRUGS (2)
  1. LUMIGAN [Suspect]
     Active Substance: BIMATOPROST
     Indication: Intraocular pressure increased
     Dosage: ONE DROP ON LEFT EYE EVERY NIGHT
     Route: 047
     Dates: start: 2014
  2. BRINZOLAMIDE [Concomitant]
     Active Substance: BRINZOLAMIDE
     Indication: Intraocular pressure increased
     Dosage: TIME INTERVAL: 0.33333333 DAYS: ONE DROP ON RIGHT EYE
     Route: 047

REACTIONS (3)
  - Eye injury [Recovered/Resolved]
  - Ocular discomfort [Recovered/Resolved]
  - Eye pain [Recovered/Resolved]

NARRATIVE: CASE EVENT DATE: 20180101
